FAERS Safety Report 20533844 (Version 2)
Quarter: 2022Q2

REPORT INFORMATION
  Report Type: Other
  Country: CA (occurrence: CA)
  Receive Date: 20220301
  Receipt Date: 20220520
  Transmission Date: 20220720
  Serious: Yes (Other)
  Sender: FDA-Public Use
  Company Number: CA-002147023-PHHY2017CA084759

PATIENT
  Sex: Male

DRUGS (6)
  1. XOLAIR [Suspect]
     Active Substance: OMALIZUMAB
     Indication: Chronic spontaneous urticaria
     Route: 058
     Dates: start: 20141121
  2. XOLAIR [Suspect]
     Active Substance: OMALIZUMAB
     Route: 058
     Dates: start: 20180328
  3. XOLAIR [Suspect]
     Active Substance: OMALIZUMAB
     Route: 058
     Dates: start: 20180425
  4. XOLAIR [Suspect]
     Active Substance: OMALIZUMAB
     Route: 058
     Dates: start: 20180530
  5. XOLAIR [Suspect]
     Active Substance: OMALIZUMAB
     Route: 058
     Dates: start: 20180718
  6. XOLAIR [Suspect]
     Active Substance: OMALIZUMAB
     Route: 065

REACTIONS (16)
  - Angioedema [Unknown]
  - Eye swelling [Unknown]
  - Lip swelling [Unknown]
  - Urticaria [Not Recovered/Not Resolved]
  - Pruritus [Unknown]
  - Disturbance in attention [Unknown]
  - Emotional distress [Unknown]
  - Mood altered [Unknown]
  - Nervousness [Unknown]
  - Body temperature decreased [Unknown]
  - Heart rate increased [Unknown]
  - General physical condition abnormal [Unknown]
  - Eating disorder [Unknown]
  - Fatigue [Unknown]
  - Sleep disorder [Unknown]
  - Middle insomnia [Unknown]

NARRATIVE: CASE EVENT DATE: 20180101
